FAERS Safety Report 4353125-3 (Version None)
Quarter: 2004Q2

REPORT INFORMATION
  Report Type: 
  Country: None (occurrence: None)
  Receive Date: 20040429
  Receipt Date: 20040416
  Transmission Date: 20050107
  Serious: Yes (Hospitalization)
  Sender: FDA-Public Use
  Company Number: 2004AP02260

PATIENT
  Sex: Male

DRUGS (3)
  1. CASODEX [Suspect]
     Indication: PROSTATE CANCER
     Dosage: 80 MG DAILY PO
     Route: 048
     Dates: start: 20031101
  2. LEUPROLIDE ACETATE [Suspect]
     Indication: PROSTATE CANCER
     Dates: end: 20040401
  3. MYONAL [Concomitant]

REACTIONS (3)
  - HAEMATURIA [None]
  - HAEMORRHAGE [None]
  - PLATELET COUNT DECREASED [None]
